FAERS Safety Report 5833166-7 (Version None)
Quarter: 2008Q3

REPORT INFORMATION
  Report Type: 
  Country: None (occurrence: None)
  Receive Date: 20080731
  Receipt Date: 20080721
  Transmission Date: 20090109
  Serious: Yes (Hospitalization)
  Sender: FDA-Public Use
  Company Number: 2008BI012460

PATIENT
  Age: 65 Year
  Sex: Female

DRUGS (10)
  1. AVONEX [Suspect]
     Indication: MULTIPLE SCLEROSIS
     Dosage: IM, 30 UG; QW; IM
     Route: 030
     Dates: start: 20020101
  2. AVONEX [Suspect]
     Indication: MULTIPLE SCLEROSIS
     Dosage: IM, 30 UG; QW; IM
     Route: 030
     Dates: start: 20040801
  3. NAMENDA [Concomitant]
  4. EXELON [Concomitant]
  5. SEROQUEL [Concomitant]
  6. SEROQUEL [Concomitant]
  7. EFFEXOR [Concomitant]
  8. LORAZEPAM [Concomitant]
  9. TRAZODONE HCL [Concomitant]
  10. FORTEO [Concomitant]

REACTIONS (4)
  - ABNORMAL BEHAVIOUR [None]
  - DELUSION [None]
  - DEMENTIA ALZHEIMER'S TYPE [None]
  - URINARY TRACT INFECTION [None]
